FAERS Safety Report 24126725 (Version 2)
Quarter: 2024Q3

REPORT INFORMATION
  Report Type: Spontaneous
  Country: US (occurrence: US)
  Receive Date: 20240723
  Receipt Date: 20240726
  Transmission Date: 20241017
  Serious: Yes (Death, Other)
  Sender: PFIZER
  Company Number: US-PFIZER INC-PV202400095386

PATIENT
  Age: 71 Year
  Sex: Male

DRUGS (1)
  1. DAPTOMYCIN [Suspect]
     Active Substance: DAPTOMYCIN
     Indication: Endocarditis
     Dosage: 800 MG, DAILY
     Route: 042

REACTIONS (2)
  - Eosinophilic pneumonia [Fatal]
  - Pulseless electrical activity [Fatal]
